FAERS Safety Report 7452405-2 (Version None)
Quarter: 2011Q2

REPORT INFORMATION
  Report Type: 
  Country: None (occurrence: None)
  Receive Date: 20110502
  Receipt Date: 20101006
  Transmission Date: 20111010
  Serious: No
  Sender: FDA-Public Use
  Company Number: US-ASTRAZENECA-2010SE47467

PATIENT
  Age: 67 Year
  Sex: Female
  Weight: 72.6 kg

DRUGS (7)
  1. AVIPRO [Concomitant]
  2. CRESTOR [Concomitant]
  3. ATENOLOL [Concomitant]
  4. NEXIUM [Suspect]
     Indication: PROPHYLAXIS
     Route: 048
  5. SYNTHROID [Concomitant]
  6. ASPIRIN [Concomitant]
  7. PREDNISONE [Concomitant]

REACTIONS (2)
  - GASTROOESOPHAGEAL REFLUX DISEASE [None]
  - DRUG DOSE OMISSION [None]
